FAERS Safety Report 24466929 (Version 1)
Quarter: 2024Q4

REPORT INFORMATION
  Report Type: Report from Study
  Country: US (occurrence: US)
  Receive Date: 20241018
  Receipt Date: 20241018
  Transmission Date: 20250115
  Serious: No
  Sender: ROCHE
  Company Number: US-ROCHE-3547546

PATIENT

DRUGS (9)
  1. XOLAIR [Suspect]
     Active Substance: OMALIZUMAB
     Indication: Product used for unknown indication
     Route: 065
  2. METOPROLOL [Suspect]
     Active Substance: METOPROLOL
     Indication: Product used for unknown indication
     Route: 065
  3. ALLEGRA [Concomitant]
     Active Substance: FEXOFENADINE HYDROCHLORIDE
  4. XYZAL [Concomitant]
     Active Substance: LEVOCETIRIZINE DIHYDROCHLORIDE
  5. CLARINEX [Concomitant]
     Active Substance: DESLORATADINE
  6. QUERCETIN [Concomitant]
     Active Substance: QUERCETIN
  7. KETOTIFEN [Concomitant]
     Active Substance: KETOTIFEN
  8. PEPCID [Concomitant]
     Active Substance: FAMOTIDINE
  9. MESTINON [Concomitant]
     Active Substance: PYRIDOSTIGMINE BROMIDE

REACTIONS (14)
  - Urticaria [Unknown]
  - Postural orthostatic tachycardia syndrome [Unknown]
  - Mast cell activation syndrome [Unknown]
  - Premenstrual dysphoric disorder [Unknown]
  - Off label use [Unknown]
  - Cold urticaria [Unknown]
  - Migraine [Unknown]
  - Flushing [Unknown]
  - Pruritus [Unknown]
  - Headache [Unknown]
  - Impaired gastric emptying [Unknown]
  - Adverse food reaction [Unknown]
  - Histamine intolerance [Unknown]
  - Loss of consciousness [Unknown]
